FAERS Safety Report 6702824-4 (Version None)
Quarter: 2010Q2

REPORT INFORMATION
  Report Type: 
  Country: None (occurrence: None)
  Receive Date: 20100429
  Receipt Date: 20100429
  Transmission Date: 20101027
  Serious: Yes (Other)
  Sender: FDA-Public Use
  Company Number: None

PATIENT
  Sex: Female
  Weight: 64.8644 kg

DRUGS (1)
  1. LEXAPRO [Suspect]
     Indication: DIZZINESS
     Dosage: 10 MG QD PO
     Route: 048
     Dates: start: 20100306, end: 20100323

REACTIONS (18)
  - AFFECT LABILITY [None]
  - BRADYCARDIA [None]
  - CHEST INJURY [None]
  - COGNITIVE DISORDER [None]
  - CONVULSION [None]
  - DIZZINESS [None]
  - ELECTROCARDIOGRAM ABNORMAL [None]
  - ELECTROENCEPHALOGRAM ABNORMAL [None]
  - FATIGUE [None]
  - FEELING OF BODY TEMPERATURE CHANGE [None]
  - GRAND MAL CONVULSION [None]
  - HAEMORRHAGE [None]
  - HEAD INJURY [None]
  - HEADACHE [None]
  - LACERATION [None]
  - LOSS OF CONSCIOUSNESS [None]
  - POST CONCUSSION SYNDROME [None]
  - PRESYNCOPE [None]
